FAERS Safety Report 5193922-8 (Version None)
Quarter: 2006Q4

REPORT INFORMATION
  Report Type: 
  Country: None (occurrence: None)
  Receive Date: 20061222
  Receipt Date: 20061209
  Transmission Date: 20070319
  Serious: Yes (Death, Disabling, Other)
  Sender: FDA-Public Use
  Company Number: 2006112429

PATIENT
  Age: 73 Year
  Sex: Female

DRUGS (1)
  1. DETROL LA [Suspect]
     Dosage: 1 IN 1 D
     Dates: end: 20050101

REACTIONS (1)
  - BLINDNESS [None]
